FAERS Safety Report 9684173 (Version 1)
Quarter: 2013Q4

REPORT INFORMATION
  Report Type: Report from Study
  Country: BR (occurrence: BR)
  Receive Date: 20131112
  Receipt Date: 20131112
  Transmission Date: 20140711
  Serious: Yes (Other)
  Sender: FDA-Public Use
  Company Number: BR-ROCHE-1298965

PATIENT
  Age: 56 Year
  Sex: Male
  Weight: 103 kg

DRUGS (5)
  1. PEG-INTERFERON ALFA 2A [Suspect]
     Indication: CHRONIC HEPATITIS C
     Route: 065
     Dates: start: 20130305
  2. PEG-INTERFERON ALFA 2A [Suspect]
     Route: 065
     Dates: start: 20090503
  3. PEG-INTERFERON ALFA 2A [Suspect]
     Route: 065
     Dates: start: 20050905
  4. RIBAVIRIN [Suspect]
     Indication: CHRONIC HEPATITIS C
     Route: 065
     Dates: start: 20130303
  5. RIBAVIRIN [Suspect]
     Route: 065
     Dates: start: 20090503

REACTIONS (1)
  - Hepatitis C [Unknown]
